FAERS Safety Report 9826113 (Version 1)
Quarter: 2014Q1

REPORT INFORMATION
  Report Type: Spontaneous
  Country: US (occurrence: None)
  Receive Date: 20140116
  Receipt Date: 20140116
  Transmission Date: 20141002
  Serious: Yes (Other)
  Sender: FDA-Public Use
  Company Number: None

PATIENT
  Age: 42 Year
  Sex: Female
  Weight: 72.58 kg

DRUGS (1)
  1. CIPROFLOXACIN [Suspect]
     Indication: URINARY TRACT INFECTION
     Dosage: 2 TWICE DAILY
     Route: 048
     Dates: start: 20131219, end: 20131228

REACTIONS (6)
  - Fatigue [None]
  - Muscle fatigue [None]
  - Arthropathy [None]
  - Arthralgia [None]
  - Arthralgia [None]
  - Activities of daily living impaired [None]
